FAERS Safety Report 15937697 (Version 1)
Quarter: 2019Q1

REPORT INFORMATION
  Report Type: Spontaneous
  Country: US (occurrence: US)
  Receive Date: 20190208
  Receipt Date: 20190208
  Transmission Date: 20190417
  Serious: No
  Sender: FDA-Public Use
  Company Number: US-AEGERION PHARMACEUTICAL, INC-AEGR003741

PATIENT
  Sex: Female
  Weight: 43.84 kg

DRUGS (1)
  1. MYALEPT [Suspect]
     Active Substance: METRELEPTIN
     Indication: CONGENITAL GENERALISED LIPODYSTROPHY
     Dosage: 5 MG, QD
     Route: 058
     Dates: start: 20140909

REACTIONS (4)
  - Ear pain [Unknown]
  - Blood glucose increased [Unknown]
  - Sinus disorder [Unknown]
  - Skin disorder [Unknown]
